FAERS Safety Report 11773022 (Version 1)
Quarter: 2015Q4

REPORT INFORMATION
  Report Type: Spontaneous
  Country: IE (occurrence: IE)
  Receive Date: 20151124
  Receipt Date: 20151124
  Transmission Date: 20160304
  Serious: Yes (Hospitalization)
  Sender: FDA-Public Use
  Company Number: IE-PFIZER INC-2015400324

PATIENT
  Age: 41 Year
  Sex: Female

DRUGS (4)
  1. GONAL-F [Suspect]
     Active Substance: FOLLITROPIN
     Indication: ASSISTED FERTILISATION
     Dosage: 250 UNIT NOT PROVIDED, UNK
     Route: 058
     Dates: start: 20150219, end: 20150228
  2. PREGNYL [Suspect]
     Active Substance: CHORIOGONADOTROPIN ALFA
     Indication: ASSISTED FERTILISATION
     Dosage: 10000 IU, UNK
     Route: 058
     Dates: start: 20150301
  3. SYNAREL [Suspect]
     Active Substance: NAFARELIN ACETATE
     Indication: ASSISTED FERTILISATION
     Dosage: 2 DF (SNIFFS), 2X/DAY
     Route: 045
     Dates: start: 20150203, end: 20150301
  4. CRINONE [Suspect]
     Active Substance: PROGESTERONE
     Indication: ASSISTED FERTILISATION
     Dosage: 1 DF, 1X/DAY (AT NIGHT), GEL 8 PERCENT
     Route: 067
     Dates: start: 20150303, end: 20150321

REACTIONS (6)
  - Ovarian cyst ruptured [Recovered/Resolved]
  - Abdominal pain lower [Recovered/Resolved]
  - Abdominal pain [Recovered/Resolved]
  - Haemorrhage [Recovered/Resolved]
  - Diarrhoea [Recovered/Resolved]
  - Ovarian cyst [Recovered/Resolved]

NARRATIVE: CASE EVENT DATE: 20150316
